FAERS Safety Report 5636422-0 (Version None)
Quarter: 2008Q1

REPORT INFORMATION
  Report Type: 
  Country: None (occurrence: None)
  Receive Date: 20080225
  Receipt Date: 20080110
  Transmission Date: 20080703
  Serious: No
  Sender: FDA-Public Use
  Company Number: A0702444A

PATIENT
  Age: 75 Year
  Sex: Female

DRUGS (4)
  1. VERAMYST [Suspect]
     Dosage: 1SPR PER DAY
     Route: 045
     Dates: start: 20071101
  2. MONOPRIL [Concomitant]
  3. LYRICA [Concomitant]
  4. DIOVAN [Concomitant]

REACTIONS (2)
  - DRUG INEFFECTIVE [None]
  - RHINORRHOEA [None]
